FAERS Safety Report 5314565-9 (Version None)
Quarter: 2007Q2

REPORT INFORMATION
  Report Type: 
  Country: None (occurrence: None)
  Receive Date: 20070425
  Receipt Date: 20070412
  Transmission Date: 20071010
  Serious: Yes (Hospitalization)
  Sender: FDA-Public Use
  Company Number: 2007BI008155

PATIENT
  Sex: Female

DRUGS (1)
  1. AVONEX [Suspect]
     Indication: DRUG USE FOR UNKNOWN INDICATION
     Dosage: 30 UG; QW; IM
     Route: 030
     Dates: start: 20000330, end: 20000430

REACTIONS (4)
  - DEHYDRATION [None]
  - IMPAIRED GASTRIC EMPTYING [None]
  - KIDNEY INFECTION [None]
  - MUSCULAR WEAKNESS [None]
